FAERS Safety Report 11043349 (Version 1)
Quarter: 2015Q2

REPORT INFORMATION
  Report Type: Spontaneous
  Country: US (occurrence: US)
  Receive Date: 20150417
  Receipt Date: 20150417
  Transmission Date: 20150821
  Serious: No
  Sender: FDA-Public Use
  Company Number: US-BIOGENIDEC-2015BI038341

PATIENT
  Sex: Female

DRUGS (1)
  1. TYSABRI [Suspect]
     Active Substance: NATALIZUMAB
     Indication: MULTIPLE SCLEROSIS
     Route: 042
     Dates: start: 20150116

REACTIONS (5)
  - Eye disorder [Not Recovered/Not Resolved]
  - Injury [Unknown]
  - Visual impairment [Not Recovered/Not Resolved]
  - Productive cough [Unknown]
  - Pruritus [Not Recovered/Not Resolved]
